FAERS Safety Report 9060116 (Version 1)
Quarter: 2013Q1

REPORT INFORMATION
  Report Type: Spontaneous
  Country: US (occurrence: US)
  Receive Date: 20130212
  Receipt Date: 20130212
  Transmission Date: 20140127
  Serious: Yes (Hospitalization)
  Sender: FDA-Public Use
  Company Number: US-BAYER-2013-016962

PATIENT
  Age: 45 Year
  Sex: Female

DRUGS (15)
  1. YAZ [Suspect]
  2. GIANVI [Suspect]
  3. OCELLA [Suspect]
  4. YASMIN [Suspect]
  5. ZOLPIDEM [Concomitant]
     Dosage: 10 MG, UNK
     Route: 048
     Dates: start: 20100219, end: 20100819
  6. ATENOLOL [Concomitant]
     Indication: HYPERTENSION
     Dosage: 50 MG, UNK
     Route: 048
     Dates: start: 20100225, end: 20100905
  7. ATENOLOL [Concomitant]
     Indication: TACHYARRHYTHMIA
  8. ADVAIR DISKUS [Concomitant]
     Dosage: 250/50 MCG
     Route: 045
     Dates: start: 20091124, end: 20101105
  9. OMEPRAZOLE [Concomitant]
     Dosage: 20 MG, UNK
     Route: 048
     Dates: start: 20100225, end: 20101109
  10. IBUPROFEN [Concomitant]
     Dosage: 800 MG, UNK
     Route: 048
     Dates: start: 20100721
  11. HYDROCODONE [Concomitant]
     Indication: PLEURITIC PAIN
  12. NORCO [Concomitant]
     Indication: PAIN
     Dosage: UNK, AS NEEDED
  13. NORCO [Concomitant]
     Indication: NAUSEA
  14. PHENERGAN [Concomitant]
     Indication: PAIN
     Dosage: UNK, AS NEEDED
  15. PHENERGAN [Concomitant]
     Indication: NAUSEA

REACTIONS (1)
  - Pulmonary embolism [None]
